FAERS Safety Report 7982588-7 (Version None)
Quarter: 2011Q4

REPORT INFORMATION
  Report Type: 
  Country: None (occurrence: None)
  Receive Date: 20111215
  Receipt Date: 20111115
  Transmission Date: 20120403
  Serious: Yes (Hospitalization, Other)
  Sender: FDA-Public Use
  Company Number: US-GLAXOSMITHKLINE-A0953944A

PATIENT
  Age: 42 Year
  Sex: Female
  Weight: 76 kg

DRUGS (8)
  1. FLOLAN [Suspect]
     Indication: PULMONARY ARTERIAL HYPERTENSION
     Dates: start: 20100707
  2. HUMALOG [Concomitant]
  3. PROCHLORPERAZINE [Concomitant]
  4. ASPIRIN [Concomitant]
  5. LEVEMIR [Concomitant]
  6. SENSIPAR [Concomitant]
  7. CLONIDINE [Concomitant]
  8. HYDRALAZINE HCL [Concomitant]

REACTIONS (4)
  - FALL [None]
  - PAIN IN JAW [None]
  - DIZZINESS [None]
  - DIARRHOEA [None]
